FAERS Safety Report 8047411-3 (Version None)
Quarter: 2012Q1

REPORT INFORMATION
  Report Type: 
  Country: None (occurrence: None)
  Receive Date: 20120116
  Receipt Date: 20120106
  Transmission Date: 20120608
  Serious: Yes (Other)
  Sender: FDA-Public Use
  Company Number: GB-TEVA-316778ISR

PATIENT
  Age: 85 Year
  Sex: Male

DRUGS (7)
  1. LISINOPRIL [Concomitant]
     Route: 048
  2. BISOPROLOL FUMARATE [Concomitant]
     Route: 048
  3. LANSOPRAZOLE [Concomitant]
  4. ACETAMINOPHEN [Concomitant]
  5. FINASTERIDE [Suspect]
     Route: 048
  6. ASPIRIN [Concomitant]
  7. QUININE SULFATE [Concomitant]
     Dosage: ONE AT NIGHT

REACTIONS (1)
  - CEREBROVASCULAR ACCIDENT [None]
